FAERS Safety Report 5595658-8 (Version None)
Quarter: 2008Q1

REPORT INFORMATION
  Report Type: 
  Country: None (occurrence: None)
  Receive Date: 20080118
  Receipt Date: 20080107
  Transmission Date: 20080703
  Serious: Yes (Death)
  Sender: FDA-Public Use
  Company Number: US-WYE-H02059408

PATIENT
  Age: 36 Year
  Sex: Female

DRUGS (2)
  1. INDERAL [Suspect]
     Dosage: UNSPECIFIED
  2. ETHANOL [Suspect]
     Dosage: UNSPECIFIED

REACTIONS (1)
  - INTENTIONAL OVERDOSE [None]
